FAERS Safety Report 4418111-3 (Version None)
Quarter: 2004Q3

REPORT INFORMATION
  Report Type: 
  Country: None (occurrence: None)
  Receive Date: 20040805
  Receipt Date: 20040805
  Transmission Date: 20050211
  Serious: Yes (Life-Threatening, Hospitalization)
  Sender: FDA-Public Use
  Company Number: None

PATIENT
  Sex: Male
  Weight: 96.9 kg

DRUGS (6)
  1. GLEEVEC [Suspect]
     Indication: GLIOBLASTOMA MULTIFORME
     Dosage: 400MG PO QD
     Route: 048
     Dates: start: 20040715, end: 20040722
  2. TEMOZOLOMIDE (TEMODAR) - SCHERING / PLOUGH [Suspect]
     Indication: GLIOBLASTOMA MULTIFORME
     Dosage: 400MG PO QD
     Route: 048
     Dates: start: 20040718, end: 20040722
  3. DILANTIN [Concomitant]
  4. DECADRON [Concomitant]
  5. ALLOPURINOL [Concomitant]
  6. LISINOPRIL [Concomitant]

REACTIONS (1)
  - UNEVALUABLE EVENT [None]
